FAERS Safety Report 20680524 (Version 1)
Quarter: 2022Q2

REPORT INFORMATION
  Report Type: Spontaneous
  Country: US (occurrence: None)
  Receive Date: 20220405
  Receipt Date: 20220405
  Transmission Date: 20220720
  Serious: Yes (Hospitalization, Other)
  Sender: FDA-Public Use
  Company Number: None

PATIENT
  Age: 71 Year
  Sex: Male

DRUGS (1)
  1. IBUPROFEN [Suspect]
     Active Substance: IBUPROFEN

REACTIONS (9)
  - Wound [None]
  - Acidosis [None]
  - Mallory-Weiss syndrome [None]
  - Ulcer [None]
  - Oesophagitis [None]
  - Gastric mucosal lesion [None]
  - Haemorrhage [None]
  - Gastric haemorrhage [None]
  - Renal impairment [None]

NARRATIVE: CASE EVENT DATE: 20210518
